FAERS Safety Report 8408410-2 (Version None)
Quarter: 2012Q2

REPORT INFORMATION
  Report Type: 
  Country: None (occurrence: None)
  Receive Date: 20120604
  Receipt Date: 20120529
  Transmission Date: 20120825
  Serious: Yes (Other)
  Sender: FDA-Public Use
  Company Number: PHEH2012US010976

PATIENT
  Sex: Female

DRUGS (3)
  1. LIPITOR [Concomitant]
     Dosage: 20 MG DAILY
  2. METOPROLOL TARTRATE [Concomitant]
     Dosage: 100 MG DAILY
  3. DIOVAN HCT [Suspect]
     Dosage: 1 DF (160/25MG), QD

REACTIONS (1)
  - ARTERIAL OCCLUSIVE DISEASE [None]
